FAERS Safety Report 15387593 (Version 10)
Quarter: 2019Q3

REPORT INFORMATION
  Report Type: Report from Study
  Country: CA (occurrence: CA)
  Receive Date: 20180914
  Receipt Date: 20190927
  Transmission Date: 20191004
  Serious: Yes (Disabling, Other)
  Sender: FDA-Public Use
  Company Number: CA-ACTELION-A-NJ2018-177199

PATIENT
  Age: 48 Year
  Sex: Male

DRUGS (34)
  1. UPTRAVI [Suspect]
     Active Substance: SELEXIPAG
     Indication: PULMONARY ARTERIAL HYPERTENSION
     Dosage: 1200 MCG, OD
     Route: 048
     Dates: start: 20180723
  2. CRESTOR [Concomitant]
     Active Substance: ROSUVASTATIN CALCIUM
  3. PANTOPRAZOLE [Concomitant]
     Active Substance: PANTOPRAZOLE
  4. SPIRONOLACTONE. [Concomitant]
     Active Substance: SPIRONOLACTONE
  5. SPIRIVA [Concomitant]
     Active Substance: TIOTROPIUM BROMIDE MONOHYDRATE
  6. HMF FORTE [Concomitant]
  7. UPTRAVI [Suspect]
     Active Substance: SELEXIPAG
     Dosage: 1000 MCG, BID
     Route: 048
  8. VOLIBRIS [Concomitant]
     Active Substance: AMBRISENTAN
  9. SILDENAFIL. [Concomitant]
     Active Substance: SILDENAFIL
  10. RAMIPRIL. [Concomitant]
     Active Substance: RAMIPRIL
  11. OXEZE [Concomitant]
     Active Substance: FORMOTEROL FUMARATE
  12. UPTRAVI [Suspect]
     Active Substance: SELEXIPAG
     Dosage: 400 MCG, UNK
     Route: 048
  13. UPTRAVI [Suspect]
     Active Substance: SELEXIPAG
     Dosage: 1000 MCG, QD
     Route: 048
  14. INSULIN [Concomitant]
     Active Substance: INSULIN NOS
  15. VITAMIN D [Concomitant]
     Active Substance: VITAMIN D NOS
  16. UPTRAVI [Suspect]
     Active Substance: SELEXIPAG
     Dosage: 600 MCG, UNK
     Route: 048
  17. UPTRAVI [Suspect]
     Active Substance: SELEXIPAG
     Dosage: 1200 MCG, QD
     Route: 048
  18. VITAMIN C [Concomitant]
     Active Substance: ASCORBIC ACID
  19. ADCIRCA [Concomitant]
     Active Substance: TADALAFIL
  20. RIFAMPIN. [Concomitant]
     Active Substance: RIFAMPIN
  21. RHINOCORT [Concomitant]
     Active Substance: BUDESONIDE
  22. UPTRAVI [Suspect]
     Active Substance: SELEXIPAG
     Dosage: 800 MCG, UNK
     Route: 048
     Dates: start: 20180723
  23. FUROSEMIDE. [Concomitant]
     Active Substance: FUROSEMIDE
  24. ACETYLCYSTEIN [Concomitant]
     Active Substance: ACETYLCYSTEINE
  25. RIFAXIMIN. [Concomitant]
     Active Substance: RIFAXIMIN
  26. UPTRAVI [Suspect]
     Active Substance: SELEXIPAG
     Dosage: 1200 MCG, BID
     Route: 048
     Dates: start: 20181003
  27. UPTRAVI [Suspect]
     Active Substance: SELEXIPAG
     Dosage: UNK, QD
     Route: 048
     Dates: start: 20180723
  28. UPTRAVI [Suspect]
     Active Substance: SELEXIPAG
     Dosage: 600 MCG QAM, 800 MCG QPM
     Route: 048
     Dates: start: 20180901
  29. UPTRAVI [Suspect]
     Active Substance: SELEXIPAG
     Dosage: UNK, QD
     Route: 048
  30. LACTULOSE. [Concomitant]
     Active Substance: LACTULOSE
  31. MAGNESIUM [Concomitant]
     Active Substance: MAGNESIUM
  32. ZINC. [Concomitant]
     Active Substance: ZINC
  33. FISH OIL [Concomitant]
     Active Substance: FISH OIL
  34. K [Concomitant]

REACTIONS (13)
  - Eye swelling [Not Recovered/Not Resolved]
  - Swelling face [Not Recovered/Not Resolved]
  - Nausea [Not Recovered/Not Resolved]
  - Dyspnoea [Not Recovered/Not Resolved]
  - Myalgia [Not Recovered/Not Resolved]
  - Weight gain poor [Not Recovered/Not Resolved]
  - Pain [Not Recovered/Not Resolved]
  - Fluid retention [Not Recovered/Not Resolved]
  - Adverse event [Unknown]
  - Drug intolerance [Unknown]
  - Eye pain [Not Recovered/Not Resolved]
  - Headache [Not Recovered/Not Resolved]
  - Pain in extremity [Not Recovered/Not Resolved]

NARRATIVE: CASE EVENT DATE: 20180730
